FAERS Safety Report 17580312 (Version 1)
Quarter: 2020Q1

REPORT INFORMATION
  Report Type: Spontaneous
  Country: US (occurrence: US)
  Receive Date: 20200324
  Receipt Date: 20200324
  Transmission Date: 20200409
  Serious: No
  Sender: FDA-Public Use
  Company Number: None

PATIENT
  Age: 78 Year
  Sex: Male
  Weight: 95.25 kg

DRUGS (12)
  1. TOPROL XL 200 MG ORAL [Concomitant]
  2. FLOMAX 0.4 MG ORAL [Concomitant]
  3. TASIGNA [Suspect]
     Active Substance: NILOTINIB
     Indication: CHRONIC MYELOMONOCYTIC LEUKAEMIA
     Route: 048
     Dates: start: 20171129, end: 20200324
  4. LEVOLHYROXINE SODIUM 100 MCG ORAL [Concomitant]
  5. DICLOFENAC SODIUM 25 MG ORAL [Concomitant]
  6. BACLOFEN 10 MG ORAL [Concomitant]
  7. LISINOPRIL 10 MG ORAL [Concomitant]
  8. ALLOPUN^NOL 100 MG ORAL [Concomitant]
  9. KLOR CON 10 MEG ORAL [Concomitant]
  10. TASIGNA [Suspect]
     Active Substance: NILOTINIB
     Indication: CHRONIC LYMPHOCYTIC LEUKAEMIA
     Route: 048
     Dates: start: 20171129, end: 20200324
  11. TRAZODONE 100 MG ORAL [Concomitant]
  12. OMEPRAZOLE 10 MG ORAL [Concomitant]

REACTIONS (1)
  - Disease progression [None]

NARRATIVE: CASE EVENT DATE: 20200324
